FAERS Safety Report 8483860-7 (Version None)
Quarter: 2012Q3

REPORT INFORMATION
  Report Type: 
  Country: None (occurrence: None)
  Receive Date: 20120703
  Receipt Date: 20120619
  Transmission Date: 20120928
  Serious: Yes (Death, Hospitalization)
  Sender: FDA-Public Use
  Company Number: US-RANBAXY-2012US-57386

PATIENT
  Age: 58 Year
  Sex: Male

DRUGS (2)
  1. DRONEDARONE HCL [Interacting]
     Indication: ATRIAL FIBRILLATION
     Dosage: 400 MG, BID
     Route: 065
  2. CARVEDILOL [Suspect]
     Indication: PRODUCT USED FOR UNKNOWN INDICATION
     Dosage: 6.25 MG/DAY
     Route: 065

REACTIONS (4)
  - SYNCOPE [None]
  - DRUG INTERACTION [None]
  - BRADYCARDIA [None]
  - ELECTROCARDIOGRAM QT PROLONGED [None]
